FAERS Safety Report 6411230-1 (Version None)
Quarter: 2009Q4

REPORT INFORMATION
  Report Type: 
  Country: None (occurrence: None)
  Receive Date: 20091020
  Receipt Date: 20091008
  Transmission Date: 20100525
  Serious: Yes (Other)
  Sender: FDA-Public Use
  Company Number: 8052509

PATIENT
  Age: 53 Year
  Sex: Female

DRUGS (5)
  1. KEPPRA [Suspect]
     Dosage: 3000 MG /D
  2. VALPROATE SODIUM [Suspect]
     Dosage: 1500 MG /D
     Dates: start: 19970701
  3. VALPROATE SODIUM [Suspect]
     Dosage: 1000 MG /D
  4. VALPROATE SODIUM [Suspect]
     Dosage: 500 MG /D
  5. TOPAMAX [Suspect]
     Dosage: 300 MG /D

REACTIONS (7)
  - ALOPECIA [None]
  - ASTROCYTOMA MALIGNANT [None]
  - COMPLEX PARTIAL SEIZURES [None]
  - COORDINATION ABNORMAL [None]
  - GAIT DISTURBANCE [None]
  - HEMIPARESIS [None]
  - POST PROCEDURAL COMPLICATION [None]
